FAERS Safety Report 7725586-0 (Version None)
Quarter: 2011Q3

REPORT INFORMATION
  Report Type: 
  Country: None (occurrence: None)
  Receive Date: 20110902
  Receipt Date: 20110822
  Transmission Date: 20111222
  Serious: Yes (Death)
  Sender: FDA-Public Use
  Company Number: US-ENDO PHARMACEUTICALS INC.-OPER20110203

PATIENT
  Sex: Male

DRUGS (2)
  1. OXYCONTIN [Suspect]
     Dosage: UNKNOWN
     Route: 065
  2. OPANA ER [Suspect]
     Route: 048
     Dates: start: 20110819

REACTIONS (1)
  - OVERDOSE [None]
